FAERS Safety Report 6761214-9 (Version None)
Quarter: 2010Q2

REPORT INFORMATION
  Report Type: 
  Country: None (occurrence: None)
  Receive Date: 20100608
  Receipt Date: 20100607
  Transmission Date: 20101027
  Serious: Yes (Hospitalization, Other)
  Sender: FDA-Public Use
  Company Number: RO-ROCHE-688997

PATIENT
  Sex: Female
  Weight: 74 kg

DRUGS (14)
  1. PEGINTERFERON ALFA-2A [Suspect]
     Indication: HEPATITIS C
     Route: 058
     Dates: start: 20100119, end: 20100330
  2. RIBAVIRIN [Suspect]
     Indication: HEPATITIS C
     Route: 048
     Dates: start: 20100119
  3. RIBAVIRIN [Suspect]
     Route: 048
     Dates: end: 20100330
  4. MABTHERA [Concomitant]
     Indication: NON-HODGKIN'S LYMPHOMA
     Route: 042
     Dates: start: 20100129
  5. MABTHERA [Concomitant]
     Route: 042
  6. METAMIZOLE SODIUM [Concomitant]
     Dosage: FREQUENCY: OCCASIONALLY; DRUG REPORTED AS METAMIZOLE
     Route: 042
     Dates: start: 20100219, end: 20100219
  7. DEXAMETHASONE [Concomitant]
     Dates: start: 20100220, end: 20100222
  8. CLORFENAMINA [Concomitant]
     Dates: start: 20100220, end: 20100222
  9. CYCLOPHOSPHAMIDE [Concomitant]
     Indication: NON-HODGKIN'S LYMPHOMA
     Dates: start: 20100322, end: 20100323
  10. CYCLOPHOSPHAMIDE [Concomitant]
     Dates: start: 20100402, end: 20100403
  11. VINCRISTINE [Concomitant]
     Indication: NON-HODGKIN'S LYMPHOMA
     Dates: start: 20100322, end: 20100323
  12. VINCRISTINE [Concomitant]
     Dates: start: 20100402, end: 20100403
  13. PREDNISONE [Concomitant]
     Indication: NON-HODGKIN'S LYMPHOMA
     Dates: start: 20100322, end: 20100323
  14. PREDNISONE [Concomitant]
     Dates: start: 20100402

REACTIONS (6)
  - ASCITES [None]
  - CARDIAC FAILURE CONGESTIVE [None]
  - NEPHROTIC SYNDROME [None]
  - RENAL FAILURE ACUTE [None]
  - RENAL FAILURE CHRONIC [None]
  - SEPSIS [None]
